FAERS Safety Report 7979723-3 (Version None)
Quarter: 2011Q4

REPORT INFORMATION
  Report Type: 
  Country: None (occurrence: None)
  Receive Date: 20111214
  Receipt Date: 20111201
  Transmission Date: 20120403
  Serious: Yes (Other)
  Sender: FDA-Public Use
  Company Number: DE-ROCHE-1018871

PATIENT
  Age: 55 Year
  Sex: Female

DRUGS (4)
  1. ACTEMRA [Suspect]
     Route: 042
  2. METHOTREXATE [Concomitant]
     Indication: RHEUMATOID ARTHRITIS
  3. ACTEMRA [Suspect]
     Indication: RHEUMATOID ARTHRITIS
     Route: 042
     Dates: start: 20091022
  4. ACTEMRA [Suspect]
     Route: 042

REACTIONS (4)
  - ANAEMIA [None]
  - HAEMOGLOBIN DECREASED [None]
  - OSTEOARTHRITIS [None]
  - BONE MARROW TOXICITY [None]
